FAERS Safety Report 5105444-0 (Version None)
Quarter: 2006Q3

REPORT INFORMATION
  Report Type: 
  Country: None (occurrence: None)
  Receive Date: 20060915
  Receipt Date: 20060602
  Transmission Date: 20061208
  Serious: No
  Sender: FDA-Public Use
  Company Number: US-GLAXOSMITHKLINE-A0607739A

PATIENT
  Sex: Male

DRUGS (8)
  1. AVANDARYL [Suspect]
     Route: 048
     Dates: start: 20060531
  2. ALLOPURINOL [Concomitant]
  3. PREVACID [Concomitant]
  4. DILTIAZEM HCL [Concomitant]
  5. PREDNISONE TAB [Concomitant]
  6. TOPROL-XL [Concomitant]
  7. IRON [Concomitant]
  8. CALCIUM GLUCONATE [Concomitant]

REACTIONS (2)
  - DIZZINESS [None]
  - HYPERHIDROSIS [None]
